FAERS Safety Report 8081580-4 (Version None)
Quarter: 2012Q1

REPORT INFORMATION
  Report Type: 
  Country: None (occurrence: None)
  Receive Date: 20120130
  Receipt Date: 20120122
  Transmission Date: 20120608
  Serious: Yes (Hospitalization)
  Sender: FDA-Public Use
  Company Number: BR-ROCHE-1032734

PATIENT
  Sex: Female

DRUGS (1)
  1. ISOTRETINOIN [Suspect]
     Indication: ACNE

REACTIONS (18)
  - URINE OUTPUT DECREASED [None]
  - IMMUNOSUPPRESSION [None]
  - LEUKOPENIA [None]
  - HEADACHE [None]
  - THROMBOCYTOPENIA [None]
  - ANGIOPATHY [None]
  - ERYTHEMA NODOSUM [None]
  - PLEURAL EFFUSION [None]
  - UNEVALUABLE EVENT [None]
  - MYALGIA [None]
  - ABDOMINAL PAIN UPPER [None]
  - HEPATOMEGALY [None]
  - TRANSAMINASES INCREASED [None]
  - LIP EXFOLIATION [None]
  - OPPORTUNISTIC INFECTION [None]
  - PYREXIA [None]
  - ACUTE RESPIRATORY DISTRESS SYNDROME [None]
  - LIP DRY [None]
